FAERS Safety Report 10791317 (Version 2)
Quarter: 2015Q1

REPORT INFORMATION
  Report Type: Spontaneous
  Country: CA (occurrence: CA)
  Receive Date: 20150213
  Receipt Date: 20150306
  Transmission Date: 20150721
  Serious: Yes (Other)
  Sender: FDA-Public Use
  Company Number: CA-BEH-2015048571

PATIENT
  Age: 55 Year
  Sex: Female
  Weight: 91 kg

DRUGS (10)
  1. SENOKOT [Concomitant]
     Active Substance: SENNOSIDES
     Dosage: BEDTIME
  2. PRIVIGEN [Suspect]
     Active Substance: HUMAN IMMUNOGLOBULIN G
     Dates: start: 20150118
  3. PRIVIGEN [Suspect]
     Active Substance: HUMAN IMMUNOGLOBULIN G
     Dosage: FRACTION ADMINISTERED 4/4, 800 ML
     Route: 042
     Dates: start: 20150119, end: 20150120
  4. HEPARIN [Concomitant]
     Active Substance: HEPARIN SODIUM
     Route: 058
  5. TYLENOL [Concomitant]
     Active Substance: ACETAMINOPHEN
     Dosage: AS NEEDED
  6. COLACE [Concomitant]
     Active Substance: DOCUSATE SODIUM
  7. PRIVIGEN [Suspect]
     Active Substance: HUMAN IMMUNOGLOBULIN G
     Indication: GUILLAIN-BARRE SYNDROME
     Dosage: FRACTION ADMINISTERED 4/4
     Route: 042
     Dates: start: 20150119, end: 20150119
  8. PRIVIGEN [Suspect]
     Active Substance: HUMAN IMMUNOGLOBULIN G
     Dosage: FRACTION ADMINISTERED 4/4, 800 ML
     Route: 042
     Dates: start: 20150119, end: 20150120
  9. PRIVIGEN [Suspect]
     Active Substance: HUMAN IMMUNOGLOBULIN G
     Dosage: FRACTION ADMINISTERED: 4/4
     Route: 042
     Dates: start: 20150120, end: 20150120
  10. LYRICA [Concomitant]
     Active Substance: PREGABALIN
     Dosage: FOR 4 YEARS
     Route: 048

REACTIONS (5)
  - Headache [Not Recovered/Not Resolved]
  - Chest pain [Recovered/Resolved]
  - Pyrexia [Recovered/Resolved]
  - Pain [Recovered/Resolved]
  - Neutropenia [Recovered/Resolved]

NARRATIVE: CASE EVENT DATE: 20150119
